FAERS Safety Report 8103025-8 (Version None)
Quarter: 2012Q1

REPORT INFORMATION
  Report Type: 
  Country: None (occurrence: None)
  Receive Date: 20120201
  Receipt Date: 20120201
  Transmission Date: 20120608
  Serious: Yes (Hospitalization)
  Sender: FDA-Public Use
  Company Number: None

PATIENT
  Sex: Female
  Weight: 65.1 kg

DRUGS (2)
  1. LOVENOX [Interacting]
     Route: 058
  2. WARFARIN SODIUM [Suspect]
     Indication: DEEP VEIN THROMBOSIS
     Dosage: 7.5MG
     Route: 048
     Dates: start: 20120126, end: 20120130

REACTIONS (7)
  - HAEMOGLOBIN DECREASED [None]
  - GINGIVAL BLEEDING [None]
  - OCCULT BLOOD POSITIVE [None]
  - MOUTH HAEMORRHAGE [None]
  - DEEP VEIN THROMBOSIS [None]
  - LACERATION [None]
  - INTERNATIONAL NORMALISED RATIO INCREASED [None]
